FAERS Safety Report 6589245-2 (Version None)
Quarter: 2010Q1

REPORT INFORMATION
  Report Type: 
  Country: None (occurrence: None)
  Receive Date: 20100218
  Receipt Date: 20100216
  Transmission Date: 20100710
  Serious: Yes (Death, Life-Threatening, Other)
  Sender: FDA-Public Use
  Company Number: BR-ROXANE LABORATORIES, INC.-2010-RO-00166RO

PATIENT
  Age: 15 Year
  Sex: Female

DRUGS (10)
  1. MERCAPTOPURINE [Suspect]
     Indication: ACUTE MYELOID LEUKAEMIA
     Route: 048
  2. METHOTREXATE [Suspect]
     Indication: ACUTE MYELOID LEUKAEMIA
     Route: 048
  3. PREDNISONE [Suspect]
     Indication: ACUTE MYELOID LEUKAEMIA
     Route: 048
  4. HYDROGEN PEROXIDE SOLUTION [Suspect]
     Indication: STOMATITIS NECROTISING
  5. METRONIDAZOLE [Suspect]
     Indication: STOMATITIS NECROTISING
     Dosage: 1600 MG
     Route: 048
  6. METRONIDAZOLE [Suspect]
     Indication: OSTEOMYELITIS
  7. AMOXICILLIN [Suspect]
     Indication: STOMATITIS NECROTISING
     Dosage: 2000 MG
     Route: 048
  8. AMOXICILLIN [Suspect]
     Indication: OSTEOMYELITIS
  9. NON-ALCOHOLIC CHLORHEXIDINE GLUCONATE [Suspect]
     Indication: STOMATITIS NECROTISING
     Dosage: 20 ML
  10. FLUORIDE [Suspect]
     Indication: STOMATITIS NECROTISING
     Route: 061

REACTIONS (12)
  - ACUTE MYELOID LEUKAEMIA [None]
  - ACUTE RESPIRATORY DISTRESS SYNDROME [None]
  - BONE DENSITY DECREASED [None]
  - BREATH ODOUR [None]
  - DYSKINESIA [None]
  - HAEMORRHAGE [None]
  - MALNUTRITION [None]
  - MOUTH ULCERATION [None]
  - OSTEOMYELITIS [None]
  - SEPSIS [None]
  - STOMATITIS NECROTISING [None]
  - TOOTH LOSS [None]
